FAERS Safety Report 21692435 (Version 1)
Quarter: 2022Q4

REPORT INFORMATION
  Report Type: Other
  Country: ES (occurrence: ES)
  Receive Date: 20221207
  Receipt Date: 20221207
  Transmission Date: 20230112
  Serious: Yes (Hospitalization)
  Sender: FDA-Public Use
  Company Number: None

PATIENT

DRUGS (3)
  1. OLMESARTAN MEDOXOMIL [Suspect]
     Active Substance: OLMESARTAN MEDOXOMIL
     Indication: Hypertension
     Dosage: 40 MILLIGRAM, QD (EVERY 24 HOURS)
     Route: 048
     Dates: start: 20181127, end: 20220420
  2. LORMETAZEPAM [Concomitant]
     Active Substance: LORMETAZEPAM
     Indication: Sleep disorder
     Dosage: 2 MILLIGRAM, QD 9EVERY 24 HOURS)
     Route: 048
     Dates: start: 20190325
  3. BISOPROLOL [Concomitant]
     Active Substance: BISOPROLOL
     Indication: Acute myocardial infarction
     Dosage: 2.5 MILLIGRAM
     Route: 048
     Dates: start: 20180131

REACTIONS (1)
  - Diarrhoea [Recovered/Resolved]

NARRATIVE: CASE EVENT DATE: 20220420
